FAERS Safety Report 18645787 (Version 1)
Quarter: 2020Q4

REPORT INFORMATION
  Report Type: Other
  Country: CA (occurrence: CA)
  Receive Date: 20201222
  Receipt Date: 20201222
  Transmission Date: 20210114
  Serious: Yes (Other)
  Sender: FDA-Public Use
  Company Number: CA-CELLTRION INC.-2020CA033962

PATIENT

DRUGS (19)
  1. METHOTREXATE. [Suspect]
     Active Substance: METHOTREXATE
     Indication: RHEUMATOID ARTHRITIS
     Route: 058
  2. PENICILLAMINE [Suspect]
     Active Substance: PENICILLAMINE
     Indication: RHEUMATOID ARTHRITIS
     Route: 065
  3. AZATHIOPRINE. [Concomitant]
     Active Substance: AZATHIOPRINE
     Indication: PRODUCT USED FOR UNKNOWN INDICATION
     Dosage: 200.0 MG, 1 EVERY 1 DAYS
     Route: 048
  4. ACTEMRA [Suspect]
     Active Substance: TOCILIZUMAB
     Indication: RHEUMATOID ARTHRITIS
     Dosage: 162.0 MG, 1 EVERY 2 WEEKS
     Route: 058
  5. SULFASALAZINE. [Concomitant]
     Active Substance: SULFASALAZINE
     Indication: PRODUCT USED FOR UNKNOWN INDICATION
     Dosage: 1.5 MG 2 EVERY 1 DAYS
     Route: 048
  6. RITUXIMAB (UNKNOWN) [Suspect]
     Active Substance: RITUXIMAB
     Indication: RHEUMATOID ARTHRITIS
     Dosage: 1.0 GRAM
     Route: 065
  7. HUMIRA [Suspect]
     Active Substance: ADALIMUMAB
     Indication: RHEUMATOID ARTHRITIS
     Dosage: 40.0 MG, 1 EVERY 2 WEEK
     Route: 058
  8. PREDNISONE. [Concomitant]
     Active Substance: PREDNISONE
     Indication: PRODUCT USED FOR UNKNOWN INDICATION
     Dosage: 8.0 MG, 1 EVERY 1 DAYS
     Route: 048
  9. ORENCIA [Suspect]
     Active Substance: ABATACEPT
     Indication: RHEUMATOID ARTHRITIS
     Dosage: 125.0 MG, 1 EVERY 1 WEEK
     Route: 058
  10. SIMPONI [Suspect]
     Active Substance: GOLIMUMAB
     Indication: RHEUMATOID ARTHRITIS
     Dosage: 50.0 MG, 1 EVERY 1 MONTH
     Route: 058
  11. ARAVA [Suspect]
     Active Substance: LEFLUNOMIDE
     Indication: RHEUMATOID ARTHRITIS
     Dosage: 20.0 MG, 1 EVERY 1 DAYS
     Route: 048
  12. GOLD [Suspect]
     Active Substance: GOLD
     Indication: PRODUCT USED FOR UNKNOWN INDICATION
     Route: 065
  13. RITUXIMAB (UNKNOWN) [Suspect]
     Active Substance: RITUXIMAB
     Dosage: 1.0 MG
     Route: 065
  14. CYCLOPHOSPHAMIDE. [Concomitant]
     Active Substance: CYCLOPHOSPHAMIDE
     Indication: PRODUCT USED FOR UNKNOWN INDICATION
     Dosage: UNK
     Route: 042
  15. DOCUSATE SODIUM. [Concomitant]
     Active Substance: DOCUSATE SODIUM
     Indication: PRODUCT USED FOR UNKNOWN INDICATION
     Dosage: 100.0 MG, 1 EVERY 1 DAYS
     Route: 048
  16. DOXYCYCLINE. [Concomitant]
     Active Substance: DOXYCYCLINE
     Indication: PRODUCT USED FOR UNKNOWN INDICATION
     Dosage: 2 EVERY 1 DAYS
     Route: 048
  17. ELAVIL/00002202/ [Concomitant]
     Indication: PRODUCT USED FOR UNKNOWN INDICATION
     Dosage: 1 EVERY 1 DAYS
     Route: 048
  18. TOBRAMYCIN. [Concomitant]
     Active Substance: TOBRAMYCIN
     Indication: PRODUCT USED FOR UNKNOWN INDICATION
     Dosage: 0.3 PERCENT
     Route: 031
  19. ENBREL [Suspect]
     Active Substance: ETANERCEPT
     Indication: PRODUCT USED FOR UNKNOWN INDICATION
     Dosage: 50.0 MG, 1 EVERY 1 WEEK
     Route: 058

REACTIONS (21)
  - Drug intolerance [Unknown]
  - Joint swelling [Unknown]
  - Inflammation [Unknown]
  - Pain [Unknown]
  - Off label use [Unknown]
  - Treatment failure [Unknown]
  - Underdose [Unknown]
  - Acute kidney injury [Unknown]
  - Rheumatoid arthritis [Unknown]
  - Drug ineffective [Unknown]
  - Vasculitis [Unknown]
  - Drug hypersensitivity [Unknown]
  - Musculoskeletal stiffness [Unknown]
  - Proteinuria [Unknown]
  - Headache [Unknown]
  - Anti-neutrophil cytoplasmic antibody positive vasculitis [Unknown]
  - Arthralgia [Unknown]
  - Chest pain [Unknown]
  - Diarrhoea [Unknown]
  - Hypersensitivity [Unknown]
  - Nausea [Unknown]
